FAERS Safety Report 8212632-3 (Version None)
Quarter: 2012Q1

REPORT INFORMATION
  Report Type: 
  Country: None (occurrence: None)
  Receive Date: 20120228
  Receipt Date: 20111115
  Transmission Date: 20120608
  Serious: Yes (Other)
  Sender: FDA-Public Use
  Company Number: RB-34354-2011

PATIENT
  Sex: Male

DRUGS (1)
  1. SUBOXONE [Suspect]
     Indication: DRUG DEPENDENCE
     Dosage: (2 MG, 2 MG DAILY TRANSPLACENTAL)
     Route: 064
     Dates: end: 20111019

REACTIONS (1)
  - DRUG WITHDRAWAL SYNDROME NEONATAL [None]
